FAERS Safety Report 9796888 (Version 4)
Quarter: 2014Q1

REPORT INFORMATION
  Report Type: Report from Study
  Country: DE (occurrence: DE)
  Receive Date: 20140104
  Receipt Date: 20140121
  Transmission Date: 20141002
  Serious: Yes (Hospitalization)
  Sender: FDA-Public Use
  Company Number: DE-AMGEN-DEUCT2013091504

PATIENT
  Age: 55 Year
  Sex: Female
  Weight: 62 kg

DRUGS (3)
  1. PANITUMUMAB [Suspect]
     Indication: OVARIAN CANCER RECURRENT
     Dosage: 6 MG/KG, UNK
     Route: 042
     Dates: start: 20131029
  2. PEGYLATED LIPOSOMAL DOXORUBICIN HYDROCHLORIDE [Concomitant]
     Indication: OVARIAN CANCER RECURRENT
     Dosage: 30 MG/M2, UNK
     Route: 042
     Dates: start: 20131029
  3. CARBOPLATIN [Concomitant]
     Indication: OVARIAN CANCER RECURRENT
     Dosage: 5 UNK, UNK
     Dates: start: 20131029

REACTIONS (1)
  - Dermatitis [Recovering/Resolving]
